FAERS Safety Report 5099095-4 (Version None)
Quarter: 2006Q3

REPORT INFORMATION
  Report Type: 
  Country: None (occurrence: None)
  Receive Date: 20060731
  Receipt Date: 20060525
  Transmission Date: 20061208
  Serious: Yes (Other)
  Sender: FDA-Public Use
  Company Number: 225290

PATIENT
  Age: 53 Year
  Sex: Female
  Weight: 95.2 kg

DRUGS (4)
  1. RITUXAN [Suspect]
     Indication: LYMPHOMA
     Dosage: 750 MG, Q3M, INTRAVENOUS
     Route: 042
     Dates: end: 20060412
  2. FLUDARABINE PHOSPHATE [Concomitant]
  3. XANAX [Concomitant]
  4. ALBUTEROL (ALBUTEROL/ALBUTEROL SULFATE) [Concomitant]

REACTIONS (1)
  - ANAPHYLACTIC SHOCK [None]
